FAERS Safety Report 12133007 (Version 3)
Quarter: 2016Q2

REPORT INFORMATION
  Report Type: Spontaneous
  Country: AU (occurrence: AU)
  Receive Date: 20160301
  Receipt Date: 20160520
  Transmission Date: 20160815
  Serious: Yes (Death)
  Sender: FDA-Public Use
  Company Number: AU-BAYER-2016-038798

PATIENT
  Age: 32 Year
  Sex: Female

DRUGS (7)
  1. LORATADINE. [Suspect]
     Active Substance: LORATADINE
  2. QUETIAPINE. [Suspect]
     Active Substance: QUETIAPINE
  3. METOCLOPRAMIDE. [Suspect]
     Active Substance: METOCLOPRAMIDE
  4. LORAZEPAM. [Suspect]
     Active Substance: LORAZEPAM
  5. TOPIRAMATE. [Suspect]
     Active Substance: TOPIRAMATE
  6. VENLAFAXINE [Suspect]
     Active Substance: VENLAFAXINE HYDROCHLORIDE
  7. OXYCODONE [Suspect]
     Active Substance: OXYCODONE

REACTIONS (3)
  - Bezoar [Fatal]
  - Obstructive airways disorder [Fatal]
  - Overdose [Fatal]
